FAERS Safety Report 14422790 (Version 1)
Quarter: 2018Q1

REPORT INFORMATION
  Report Type: Spontaneous
  Country: IL (occurrence: IL)
  Receive Date: 20180123
  Receipt Date: 20180123
  Transmission Date: 20180509
  Serious: Yes (Other)
  Sender: FDA-Public Use
  Company Number: IL-ROCHE-2036184

PATIENT
  Age: 54 Year
  Sex: Male

DRUGS (5)
  1. MELPHALAN. [Concomitant]
     Active Substance: MELPHALAN
  2. FLUDARABINE [Concomitant]
     Active Substance: FLUDARABINE PHOSPHATE
  3. GANCICLOVIR. [Suspect]
     Active Substance: GANCICLOVIR
     Indication: CYTOMEGALOVIRUS INFECTION
     Route: 065
  4. THIOTEPA. [Concomitant]
     Active Substance: THIOTEPA
  5. FOSCARNET [Concomitant]
     Active Substance: FOSCARNET
     Indication: CYTOMEGALOVIRUS INFECTION

REACTIONS (2)
  - Encephalitis cytomegalovirus [Unknown]
  - Drug resistance [Unknown]
